FAERS Safety Report 7738625-8 (Version None)
Quarter: 2011Q3

REPORT INFORMATION
  Report Type: 
  Country: None (occurrence: None)
  Receive Date: 20110908
  Receipt Date: 20110902
  Transmission Date: 20111222
  Serious: Yes (Other)
  Sender: FDA-Public Use
  Company Number: DE-B.I. PHARMACEUTICALS,INC./RIDGEFIELD-2011-DE-04262DE

PATIENT
  Sex: Male
  Weight: 75 kg

DRUGS (5)
  1. PRADAXA [Suspect]
     Indication: ATRIAL FIBRILLATION
     Dosage: 220 MG
     Dates: start: 20101101
  2. PRAVASTATIN [Concomitant]
     Indication: CORONARY ARTERY DISEASE
     Dosage: 1 ANZ
     Route: 048
  3. PRADAXA [Suspect]
     Indication: PROPHYLAXIS
  4. DIOVAN [Concomitant]
     Indication: HYPERTENSION
     Dosage: 2 ANZ
     Route: 048
  5. PROSTAGUTT [Concomitant]
     Indication: BENIGN PROSTATIC HYPERPLASIA
     Dosage: 2 ANZ
     Route: 048

REACTIONS (5)
  - PYREXIA [None]
  - NASOPHARYNGITIS [None]
  - CEREBRAL MICROANGIOPATHY [None]
  - TRANSIENT ISCHAEMIC ATTACK [None]
  - NEUROLOGICAL DECOMPENSATION [None]
